FAERS Safety Report 9526322 (Version 1)
Quarter: 2013Q1

REPORT INFORMATION
  Report Type: Spontaneous
  Country: US (occurrence: None)
  Receive Date: 20130305
  Receipt Date: 20130305
  Transmission Date: 20140127
  Serious: Yes (Hospitalization)
  Sender: FDA-Public Use
  Company Number: 163-21880-12020946

PATIENT
  Age: 90 Year
  Sex: Female
  Weight: 80.74 kg

DRUGS (4)
  1. REVLIMID (LENALIDOMIDE) (25 MILLIGRAM, CAPSULES) [Suspect]
     Indication: PLASMA CELL MYELOMA
     Route: 048
     Dates: start: 20111118, end: 20111215
  2. ZOMETA (ZOLEDRONIC ACID) [Concomitant]
  3. AVAPRO (IRBESARTAN) [Concomitant]
  4. INDERAL (PROPRANOLOL HYDROCHLORIDE) [Concomitant]

REACTIONS (1)
  - Cardiac failure congestive [None]
